FAERS Safety Report 5172248-2 (Version None)
Quarter: 2006Q4

REPORT INFORMATION
  Report Type: 
  Country: None (occurrence: None)
  Receive Date: 20061213
  Receipt Date: 20060620
  Transmission Date: 20070319
  Serious: No
  Sender: FDA-Public Use
  Company Number: US-AMGEN-KDL183675

PATIENT
  Sex: Male
  Weight: 88.1 kg

DRUGS (7)
  1. ENBREL [Suspect]
     Indication: RHEUMATOID ARTHRITIS
     Route: 058
     Dates: start: 20040301
  2. METHOTREXATE [Concomitant]
  3. MONOPRIL [Concomitant]
  4. LIPITOR [Concomitant]
  5. VICODIN [Concomitant]
  6. MULTI-VITAMINS [Concomitant]
  7. PRILOSEC [Concomitant]

REACTIONS (1)
  - HERPES ZOSTER [None]
